FAERS Safety Report 4597475-4 (Version None)
Quarter: 2005Q1

REPORT INFORMATION
  Report Type: 
  Country: None (occurrence: None)
  Receive Date: 20050303
  Receipt Date: 20050228
  Transmission Date: 20050727
  Serious: Yes (Other)
  Sender: FDA-Public Use
  Company Number: US-MERCK-0503USA00040

PATIENT
  Age: 60 Year

DRUGS (2)
  1. INVANZ [Suspect]
     Route: 042
  2. CANCIDAS [Suspect]
     Route: 042

REACTIONS (1)
  - CONVULSION [None]
